FAERS Safety Report 26203429 (Version 1)
Quarter: 2025Q4

REPORT INFORMATION
  Report Type: Spontaneous
  Country: US (occurrence: US)
  Receive Date: 20251226
  Receipt Date: 20251226
  Transmission Date: 20260118
  Serious: No
  Sender: CELLTRION
  Company Number: US-CELLTRION INC.-2025US037348

PATIENT

DRUGS (1)
  1. TRUXIMA [Suspect]
     Active Substance: RITUXIMAB-ABBS
     Indication: Product used for unknown indication
     Dosage: 25 MG/HR; ORIGINALLY  RECEIVED DOSES  IN 2/2025 (NOT  THE FULL COURSE)
     Dates: start: 202502

REACTIONS (1)
  - Therapy interrupted [Unknown]
